FAERS Safety Report 9933673 (Version 2)
Quarter: 2014Q1

REPORT INFORMATION
  Report Type: Report from Study
  Country: US (occurrence: US)
  Receive Date: 20140228
  Receipt Date: 20140228
  Transmission Date: 20141002
  Serious: No
  Sender: FDA-Public Use
  Company Number: US-MYLANLABS-2014S1000101

PATIENT
  Sex: Male
  Weight: 80 kg

DRUGS (3)
  1. AMNESTEEM CAPSULES [Suspect]
     Indication: ACNE
     Dates: end: 2013
  2. ZOLPIDEM [Concomitant]
  3. ADDERALL [Concomitant]

REACTIONS (1)
  - Mood swings [Recovered/Resolved]
